FAERS Safety Report 6919742-9 (Version None)
Quarter: 2010Q3

REPORT INFORMATION
  Report Type: 
  Country: None (occurrence: None)
  Receive Date: 20100810
  Receipt Date: 20100810
  Transmission Date: 20110219
  Serious: Yes (Hospitalization)
  Sender: FDA-Public Use
  Company Number: None

PATIENT
  Age: 26 Year
  Sex: Female
  Weight: 48 kg

DRUGS (9)
  1. WARFARIN SODIUM [Suspect]
     Indication: HAEMODIALYSIS
     Dosage: 2MG DAILY ORAL (CHRONIC)
     Route: 048
  2. ESOMEPRAZOLE MAGNESIUM [Concomitant]
  3. RENAGEL [Concomitant]
  4. ACETAMINOPHEN [Concomitant]
  5. M.V.I. [Concomitant]
  6. ACYCLOVIR [Concomitant]
  7. CARVEDILOL [Concomitant]
  8. LEVITERICETAM [Concomitant]
  9. QUETIAPINE [Concomitant]

REACTIONS (2)
  - EPISTAXIS [None]
  - INTERNATIONAL NORMALISED RATIO INCREASED [None]
